APPROVED DRUG PRODUCT: PROMACTA
Active Ingredient: ELTROMBOPAG OLAMINE
Strength: EQ 75MG ACID
Dosage Form/Route: TABLET;ORAL
Application: N022291 | Product #003 | TE Code: AB
Applicant: NOVARTIS PHARMACEUTICALS CORP
Approved: Sep 8, 2009 | RLD: Yes | RS: Yes | Type: RX

PATENTS:
Patent 8071129 | Expires: Aug 1, 2027
Patent 8062665 | Expires: Aug 1, 2027
Patent 7547719 | Expires: Jul 13, 2025
Patent 7547719 | Expires: Jul 13, 2025
Patent 8828430 | Expires: Aug 1, 2027
Patent 8052993 | Expires: Aug 1, 2027
Patent 8052994 | Expires: Aug 1, 2027
Patent 8062665 | Expires: Aug 1, 2027
Patent 8062665 | Expires: Aug 1, 2027
Patent 7547719 | Expires: Jul 13, 2025
Patent 8828430 | Expires: Aug 1, 2027
Patent 7547719 | Expires: Jul 13, 2025
Patent 7547719 | Expires: Jul 13, 2025
Patent 8828430*PED | Expires: Feb 1, 2028
Patent 7547719*PED | Expires: Jan 13, 2026
Patent 8062665*PED | Expires: Feb 1, 2028
Patent 8052993*PED | Expires: Feb 1, 2028
Patent 8052994*PED | Expires: Feb 1, 2028
Patent 8071129*PED | Expires: Feb 1, 2028